FAERS Safety Report 10388912 (Version 1)
Quarter: 2014Q1

REPORT INFORMATION
  Report Type: Spontaneous
  Country: US (occurrence: None)
  Receive Date: 20140306
  Receipt Date: 20140306
  Transmission Date: 20141002
  Serious: Yes (Other)
  Sender: FDA-Public Use
  Company Number: 163-21880-13114752

PATIENT
  Age: 72 Year
  Sex: Female
  Weight: 65.6 kg

DRUGS (1)
  1. REVLIMID [Suspect]
     Indication: MYELODYSPLASTIC SYNDROME
     Route: 048

REACTIONS (2)
  - Acute myeloid leukaemia [None]
  - Myelodysplastic syndrome transformation [None]
